FAERS Safety Report 21680093 (Version 1)
Quarter: 2022Q4

REPORT INFORMATION
  Report Type: Report from Study
  Country: US (occurrence: US)
  Receive Date: 20221205
  Receipt Date: 20221205
  Transmission Date: 20230112
  Serious: No
  Sender: FDA-Public Use
  Company Number: US-ABBVIE-22K-163-4503886-00

PATIENT
  Age: 55 Year
  Sex: Male

DRUGS (1)
  1. RINVOQ [Suspect]
     Active Substance: UPADACITINIB
     Indication: Rheumatoid arthritis
     Route: 048
     Dates: start: 20220723, end: 2022

REACTIONS (4)
  - Herpes zoster [Unknown]
  - Skin disorder [Unknown]
  - Hepatic steatosis [Unknown]
  - Pruritus [Unknown]

NARRATIVE: CASE EVENT DATE: 20220810
